FAERS Safety Report 25259969 (Version 13)
Quarter: 2025Q4

REPORT INFORMATION
  Report Type: Report from Study
  Country: JP (occurrence: JP)
  Receive Date: 20250501
  Receipt Date: 20251208
  Transmission Date: 20260117
  Serious: Yes (Hospitalization, Other)
  Sender: UCB
  Company Number: JP-UCBJ-CD202505748UCBPHAPROD

PATIENT
  Age: 41 Year
  Weight: 72 kg

DRUGS (6)
  1. ROZANOLIXIZUMAB [Suspect]
     Active Substance: ROZANOLIXIZUMAB
     Indication: Myasthenia gravis
     Dosage: 560 MILLIGRAM, WEEKLY (QW)
  2. ROZANOLIXIZUMAB [Suspect]
     Active Substance: ROZANOLIXIZUMAB
     Dosage: 560 MILLIGRAM, WEEKLY (QW)
  3. PREDONINE [Suspect]
     Active Substance: PREDNISOLONE
     Indication: Product used for unknown indication
     Dosage: 10 MILLIGRAM
  4. PREDONINE [Suspect]
     Active Substance: PREDNISOLONE
     Dosage: 7.5 MILLIGRAM
  5. DIENOGEST [Concomitant]
     Active Substance: DIENOGEST
     Indication: Menstrual cycle management
     Dosage: UNK
  6. TACROLIMUS [Concomitant]
     Active Substance: TACROLIMUS
     Indication: Product used for unknown indication

REACTIONS (20)
  - Physical deconditioning [Unknown]
  - Myasthenia gravis [Recovered/Resolved]
  - Papillary thyroid cancer [Unknown]
  - Headache [Recovered/Resolved]
  - Salivary gland pain [Unknown]
  - Neck pain [Unknown]
  - Pyrexia [Recovered/Resolved]
  - Intermenstrual bleeding [Not Recovered/Not Resolved]
  - Weight increased [Not Recovered/Not Resolved]
  - Cough [Not Recovered/Not Resolved]
  - Diarrhoea [Recovering/Resolving]
  - Injection site bruising [Not Recovered/Not Resolved]
  - Injection site induration [Not Recovered/Not Resolved]
  - Blood immunoglobulin G decreased [Unknown]
  - White blood cell count increased [Unknown]
  - C-reactive protein increased [Unknown]
  - Hepatic function abnormal [Unknown]
  - Thyroid function test abnormal [Unknown]
  - Electrolyte imbalance [Unknown]
  - Off label use [Unknown]
